FAERS Safety Report 12831393 (Version 2)
Quarter: 2016Q4

REPORT INFORMATION
  Report Type: Spontaneous
  Country: US (occurrence: US)
  Receive Date: 20161008
  Receipt Date: 20161214
  Transmission Date: 20170207
  Serious: Yes (Other)
  Sender: FDA-Public Use
  Company Number: US-AMGEN-USASP2016136027

PATIENT

DRUGS (6)
  1. FEMARA [Concomitant]
     Active Substance: LETROZOLE
  2. FASLODEX [Concomitant]
     Active Substance: FULVESTRANT
  3. XGEVA [Suspect]
     Active Substance: DENOSUMAB
     Indication: METASTATIC NEOPLASM
     Dosage: UNK
     Route: 065
  4. XELODA [Concomitant]
     Active Substance: CAPECITABINE
  5. TAMOXIFEN [Concomitant]
     Active Substance: TAMOXIFEN
  6. IBRANCE [Concomitant]
     Active Substance: PALBOCICLIB

REACTIONS (1)
  - Metastases to liver [Unknown]

NARRATIVE: CASE EVENT DATE: 201504
